FAERS Safety Report 8324448-8 (Version None)
Quarter: 2012Q2

REPORT INFORMATION
  Report Type: 
  Country: None (occurrence: None)
  Receive Date: 20120430
  Receipt Date: 20120430
  Transmission Date: 20120825
  Serious: Yes (Hospitalization)
  Sender: FDA-Public Use
  Company Number: None

PATIENT
  Sex: Male
  Weight: 99.5 kg

DRUGS (1)
  1. CISPLATIN [Suspect]
     Dosage: 400 MG

REACTIONS (8)
  - MUCOSAL INFLAMMATION [None]
  - CONSTIPATION [None]
  - DEHYDRATION [None]
  - PAIN [None]
  - VOMITING [None]
  - NAUSEA [None]
  - WEIGHT DECREASED [None]
  - FAILURE TO THRIVE [None]
